FAERS Safety Report 6905752-4 (Version None)
Quarter: 2010Q3

REPORT INFORMATION
  Report Type: 
  Country: None (occurrence: None)
  Receive Date: 20100804
  Receipt Date: 20100721
  Transmission Date: 20110219
  Serious: Yes (Hospitalization)
  Sender: FDA-Public Use
  Company Number: GB-MYLANLABS-2010S1013300

PATIENT
  Age: 41 Year
  Sex: Female

DRUGS (10)
  1. FLUPENTHIXOL [Suspect]
     Indication: INTENTIONAL OVERDOSE
  2. FLUPENTHIXOL [Suspect]
     Indication: PRODUCT USED FOR UNKNOWN INDICATION
  3. OXAZEPAM [Suspect]
     Indication: INTENTIONAL OVERDOSE
  4. OXAZEPAM [Suspect]
     Indication: PRODUCT USED FOR UNKNOWN INDICATION
  5. PROPRANOLOL [Suspect]
     Indication: INTENTIONAL OVERDOSE
  6. PROPRANOLOL [Suspect]
     Indication: PRODUCT USED FOR UNKNOWN INDICATION
  7. VALPROATE SODIUM [Suspect]
     Indication: INTENTIONAL OVERDOSE
  8. VALPROATE SODIUM [Suspect]
     Indication: PRODUCT USED FOR UNKNOWN INDICATION
  9. CLONAZEPAM [Suspect]
     Indication: INTENTIONAL OVERDOSE
  10. CLONAZEPAM [Suspect]
     Indication: PRODUCT USED FOR UNKNOWN INDICATION

REACTIONS (3)
  - BRADYCARDIA [None]
  - METABOLIC ENCEPHALOPATHY [None]
  - MULTIPLE DRUG OVERDOSE INTENTIONAL [None]
